FAERS Safety Report 5925537-5 (Version None)
Quarter: 2008Q4

REPORT INFORMATION
  Report Type: 
  Country: None (occurrence: None)
  Receive Date: 20081021
  Receipt Date: 20081009
  Transmission Date: 20090506
  Serious: Yes (Hospitalization)
  Sender: FDA-Public Use
  Company Number: DE-ROCHE-590652

PATIENT
  Age: 43 Year
  Sex: Female

DRUGS (11)
  1. MYCOPHENOLATE MOFETIL [Suspect]
     Indication: DRUG USE FOR UNKNOWN INDICATION
     Route: 065
  2. VALGANCICLOVIR HCL [Suspect]
     Dosage: FREQUENCY : EVERY 2 DAY
     Route: 048
     Dates: start: 20080811
  3. TACROLIMUS [Suspect]
     Indication: DRUG USE FOR UNKNOWN INDICATION
     Route: 065
  4. PREDNISONE TAB [Concomitant]
  5. METOPROLOL TARTRATE [Concomitant]
  6. EISEN(II)-SULFAT 2 H2O [Concomitant]
     Dosage: TDD REPORTED : 1KPS
  7. EPOGEN [Concomitant]
     Dosage: 3X/WEEK : 4000 IE
  8. NOVONORM [Concomitant]
  9. CLARITHROMYCIN [Concomitant]
  10. OMEPRAZOLE [Concomitant]
  11. AMOXICILLIN [Concomitant]

REACTIONS (3)
  - DEEP VEIN THROMBOSIS [None]
  - DUODENITIS [None]
  - GASTRITIS [None]
